FAERS Safety Report 12503680 (Version 1)
Quarter: 2016Q2

REPORT INFORMATION
  Report Type: Spontaneous
  Country: US (occurrence: None)
  Receive Date: 20160627
  Receipt Date: 20160627
  Transmission Date: 20160815
  Serious: Yes (Hospitalization)
  Sender: FDA-Public Use
  Company Number: None

PATIENT
  Age: 66 Year
  Sex: Male
  Weight: 58.9 kg

DRUGS (6)
  1. QUINACRINE 200 MG BID [Suspect]
     Active Substance: QUINACRINE
     Indication: COLON CANCER
     Route: 048
     Dates: start: 20160531
  2. ALDACTONE [Concomitant]
     Active Substance: SPIRONOLACTONE
  3. CAPECITABINE 1500 MG BID [Suspect]
     Active Substance: CAPECITABINE
     Indication: COLON CANCER
     Dosage: 1500MG D1-14 BID ORAL
     Route: 048
     Dates: start: 20160531
  4. OXYCODONE [Concomitant]
     Active Substance: OXYCODONE
  5. LASIX [Concomitant]
     Active Substance: FUROSEMIDE
  6. TRAVATAN [Concomitant]
     Active Substance: TRAVOPROST

REACTIONS (8)
  - Diarrhoea [None]
  - Haematemesis [None]
  - Vomiting [None]
  - Anaemia [None]
  - Hepatic encephalopathy [None]
  - Melaena [None]
  - Syncope [None]
  - Face injury [None]

NARRATIVE: CASE EVENT DATE: 20160613
